FAERS Safety Report 4489405-0 (Version None)
Quarter: 2004Q4

REPORT INFORMATION
  Report Type: 
  Country: None (occurrence: None)
  Receive Date: 20041026
  Receipt Date: 20041014
  Transmission Date: 20050328
  Serious: Yes (Hospitalization)
  Sender: FDA-Public Use
  Company Number: 2004077299

PATIENT
  Age: 67 Year
  Sex: Female

DRUGS (9)
  1. AMLODIPINE [Suspect]
     Indication: ILL-DEFINED DISORDER
     Dosage: 7.5 MG (1 D), ORAL
     Route: 048
  2. LIPITOR [Suspect]
     Indication: ILL-DEFINED DISORDER
     Dosage: 10 MG (1 D), ORAL
     Route: 048
  3. ALLOPURINOL [Suspect]
     Indication: ILL-DEFINED DISORDER
     Dosage: 100 MG (1 D), ORAL
     Route: 048
  4. FERROUS FUMARATE [Suspect]
     Indication: ILL-DEFINED DISORDER
     Dosage: 305 MG (1 D), ORAL
     Route: 048
  5. VALSARTAN (VALSARTAN) [Suspect]
     Indication: ILL-DEFINED DISORDER
     Dosage: 80 MG (1 D), ORAL
     Route: 048
  6. CLOTIZEPAM (CLOTIAZEPAM) [Concomitant]
     Indication: ILL-DEFINED DISORDER
     Dosage: 15 MG (1 D), ORAL
     Route: 048
  7. MECOBALAMIN (MECOBALAMIN) [Concomitant]
  8. ETHYL LOFLAZEPATE (ETHYL LOFLAZEPATE) [Concomitant]
  9. INVESTIGATIONAL DRUG (INVESTIGATIONAL DRUG) [Concomitant]

REACTIONS (4)
  - ALANINE AMINOTRANSFERASE INCREASED [None]
  - ASPARTATE AMINOTRANSFERASE INCREASED [None]
  - HEPATIC FUNCTION ABNORMAL [None]
  - PYREXIA [None]
